FAERS Safety Report 5928369-7 (Version None)
Quarter: 2008Q4

REPORT INFORMATION
  Report Type: 
  Country: None (occurrence: None)
  Receive Date: 20081023
  Receipt Date: 20081008
  Transmission Date: 20090506
  Serious: Yes (Other)
  Sender: FDA-Public Use
  Company Number: JP-PFIZER INC-2008088118

PATIENT
  Sex: Female

DRUGS (1)
  1. ZITHROMAX [Suspect]
     Indication: CHLAMYDIAL INFECTION
     Route: 048
     Dates: start: 20080901, end: 20080901

REACTIONS (1)
  - ANOVULATORY CYCLE [None]
